FAERS Safety Report 24716980 (Version 6)
Quarter: 2025Q4

REPORT INFORMATION
  Report Type: Report from Study
  Country: GB (occurrence: None)
  Receive Date: 20241210
  Receipt Date: 20251202
  Transmission Date: 20260118
  Serious: Yes (Other)
  Sender: UCB
  Company Number: GB-UCBSA-2024063137

PATIENT
  Age: 50 Year
  Weight: 57 kg

DRUGS (5)
  1. BIMEKIZUMAB [Suspect]
     Active Substance: BIMEKIZUMAB
     Indication: Psoriatic arthropathy
     Dosage: 160 MILLIGRAM, EV 4 WEEKS
  2. BIMEKIZUMAB [Suspect]
     Active Substance: BIMEKIZUMAB
     Dosage: 160 MILLIGRAM, EV 4 WEEKS
  3. Hydrox ocobalam in [Concomitant]
     Indication: Folate deficiency
     Dosage: 1 AMPULE AS NEEDED
  4. Sa lbutam ol [Concomitant]
     Indication: Asthma
     Dosage: 200 MICROGRAM AS NEEDED
  5. FAMOTIDINE [Concomitant]
     Active Substance: FAMOTIDINE
     Indication: Oesophagitis
     Dosage: 20 MILLIGRAM, ONCE DAILY (QD)

REACTIONS (2)
  - Oesophageal candidiasis [Recovered/Resolved]
  - Oesophagitis ulcerative [Recovered/Resolved]
